FAERS Safety Report 9770465 (Version 1)
Quarter: 2013Q4

REPORT INFORMATION
  Report Type: Spontaneous
  Country: IT (occurrence: IT)
  Receive Date: 20131218
  Receipt Date: 20131218
  Transmission Date: 20140711
  Serious: Yes (Other)
  Sender: FDA-Public Use
  Company Number: IT-ASTRAZENECA-2013SE90825

PATIENT
  Sex: Male

DRUGS (2)
  1. ATENOLOL [Suspect]
  2. OTHER DRUGS [Concomitant]

REACTIONS (3)
  - Nodal rhythm [Recovered/Resolved]
  - Nocturnal dyspnoea [Recovered/Resolved]
  - Bradycardia [Recovered/Resolved]
